FAERS Safety Report 5914648-6 (Version None)
Quarter: 2008Q4

REPORT INFORMATION
  Report Type: 
  Country: None (occurrence: None)
  Receive Date: 20081008
  Receipt Date: 20080925
  Transmission Date: 20090506
  Serious: Yes (Hospitalization)
  Sender: FDA-Public Use
  Company Number: 238296J08USA

PATIENT
  Age: 36 Year
  Sex: Male
  Weight: 82 kg

DRUGS (6)
  1. REBIF [Suspect]
     Indication: MULTIPLE SCLEROSIS
     Dosage: 44 MCG, 3 IN 1 WEEKS, SUBCUTANEOUS
     Route: 058
     Dates: start: 20080729
  2. NORCO [Concomitant]
  3. NEURONTIN [Concomitant]
  4. MORPHINE [Concomitant]
  5. CYMBALTA [Concomitant]
  6. VALIUM [Concomitant]

REACTIONS (2)
  - HAEMOPTYSIS [None]
  - PNEUMONIA [None]
